FAERS Safety Report 12682631 (Version 2)
Quarter: 2016Q3

REPORT INFORMATION
  Report Type: Spontaneous
  Country: IT (occurrence: IT)
  Receive Date: 20160825
  Receipt Date: 20160827
  Transmission Date: 20161109
  Serious: Yes (Hospitalization, Other)
  Sender: FDA-Public Use
  Company Number: IT-AMGEN-ITASP2016107779

PATIENT
  Age: 72 Year
  Sex: Female

DRUGS (8)
  1. FOLINA [Concomitant]
     Active Substance: FOLIC ACID
     Dosage: 15 MG, UNK
     Route: 048
  2. METOCAL VITAMINA D3 [Concomitant]
     Dosage: 1 DF, UNK
     Route: 048
  3. ENBREL [Suspect]
     Active Substance: ETANERCEPT
     Indication: RHEUMATOID ARTHRITIS
     Dosage: 50 MG, CYCLIC
     Route: 058
     Dates: start: 20140319
  4. MEDROL [Concomitant]
     Active Substance: METHYLPREDNISOLONE
     Dosage: 12 MG, UNK
     Route: 048
  5. LANSOPRAZOLO [Concomitant]
     Active Substance: LANSOPRAZOLE
     Dosage: 15 MG, UNK
     Route: 048
  6. DICLOFENAC [Concomitant]
     Active Substance: DICLOFENAC
     Dosage: 75 MG, UNK
     Route: 048
  7. METHOTREXATE. [Concomitant]
     Active Substance: METHOTREXATE
     Dosage: 6 DF, UNK
     Route: 048
  8. DIBASE [Concomitant]
     Active Substance: CHOLECALCIFEROL
     Dosage: 25000 IU, UNK
     Route: 048

REACTIONS (10)
  - Abdominal pain [Recovered/Resolved]
  - Thyroid mass [Unknown]
  - Muscle spasms [Recovered/Resolved]
  - Haematuria [Unknown]
  - Leukocyturia [Unknown]
  - Chest pain [Recovered/Resolved]
  - Abdominal pain upper [Recovered/Resolved]
  - Eructation [Recovered/Resolved]
  - Pericarditis [Recovered/Resolved]
  - Pyrexia [Unknown]

NARRATIVE: CASE EVENT DATE: 20141015
